FAERS Safety Report 7398144-8 (Version None)
Quarter: 2011Q2

REPORT INFORMATION
  Report Type: 
  Country: None (occurrence: None)
  Receive Date: 20110406
  Receipt Date: 20110401
  Transmission Date: 20111010
  Serious: Yes (Hospitalization)
  Sender: FDA-Public Use
  Company Number: US-ABBOTT-11P-163-0716238-00

PATIENT
  Sex: Female
  Weight: 57.658 kg

DRUGS (7)
  1. HUMIRA [Suspect]
     Indication: RHEUMATOID ARTHRITIS
     Dates: start: 20080101
  2. LEXAPRO [Concomitant]
     Indication: DEPRESSION
  3. BENICAR [Concomitant]
     Indication: HYPERTENSION
  4. NOVOLOG [Concomitant]
     Indication: DIABETES MELLITUS
  5. PREDNISONE [Concomitant]
     Indication: RHEUMATOID ARTHRITIS
  6. PROTONIX [Concomitant]
     Indication: DYSPEPSIA
  7. LANTUS [Concomitant]
     Indication: DIABETES MELLITUS

REACTIONS (11)
  - DIARRHOEA [None]
  - DYSPNOEA [None]
  - HYPOKALAEMIA [None]
  - LABORATORY TEST ABNORMAL [None]
  - BACTERIAL DISEASE CARRIER [None]
  - INFLUENZA LIKE ILLNESS [None]
  - PNEUMONIA [None]
  - ANAEMIA [None]
  - FATIGUE [None]
  - VOMITING [None]
  - PNEUMONIA ASPIRATION [None]
